FAERS Safety Report 5794419-4 (Version None)
Quarter: 2008Q2

REPORT INFORMATION
  Report Type: 
  Country: None (occurrence: None)
  Receive Date: 20080625
  Receipt Date: 20080613
  Transmission Date: 20081010
  Serious: Yes (Other)
  Sender: FDA-Public Use
  Company Number: 2008014543

PATIENT
  Age: 23 Year
  Sex: Female

DRUGS (1)
  1. NICORETTE [Suspect]
     Indication: SMOKING CESSATION THERAPY
     Dosage: ONE PATCH ONCE,TRANSDERMAL
     Route: 062
     Dates: start: 20080603, end: 20080603

REACTIONS (4)
  - APPLICATION SITE BRUISING [None]
  - APPLICATION SITE BURN [None]
  - APPLICATION SITE PAIN [None]
  - VEIN PAIN [None]
